FAERS Safety Report 6823990-6 (Version None)
Quarter: 2010Q3

REPORT INFORMATION
  Report Type: 
  Country: None (occurrence: None)
  Receive Date: 20100708
  Receipt Date: 20061004
  Transmission Date: 20110219
  Serious: No
  Sender: FDA-Public Use
  Company Number: US-PFIZER INC-2006115923

PATIENT
  Sex: Female
  Weight: 49.9 kg

DRUGS (11)
  1. CHANTIX [Suspect]
     Indication: EX-TOBACCO USER
     Dates: start: 20060920
  2. LABETALOL HCL [Concomitant]
  3. VALSARTAN [Concomitant]
  4. SYNTHROID [Concomitant]
  5. VERAPAMIL [Concomitant]
  6. WARFARIN SODIUM [Concomitant]
  7. VYTORIN [Concomitant]
  8. LIPITOR [Concomitant]
  9. SPIRIVA [Concomitant]
  10. PREDNISONE [Concomitant]
  11. ADVAIR DISKUS 100/50 [Concomitant]

REACTIONS (2)
  - NAUSEA [None]
  - VOMITING [None]
